FAERS Safety Report 8059163-1 (Version None)
Quarter: 2012Q1

REPORT INFORMATION
  Report Type: 
  Country: None (occurrence: None)
  Receive Date: 20120120
  Receipt Date: 20110411
  Transmission Date: 20120608
  Serious: Yes (Hospitalization, Other)
  Sender: FDA-Public Use
  Company Number: US-BRISTOL-MYERS SQUIBB COMPANY-15554769

PATIENT
  Age: 51 Year
  Sex: Male

DRUGS (10)
  1. ERBITUX [Suspect]
     Indication: HEAD AND NECK CANCER
     Dosage: LOT# 10C00063A FOR 3 VIALS,LOT # 09C00654B FOR 1 VIAL
     Route: 042
     Dates: start: 20110215, end: 20110215
  2. AMBIEN [Concomitant]
  3. ACYCLOVIR [Concomitant]
  4. RANITIDINE HCL [Concomitant]
     Route: 042
     Dates: start: 20110215, end: 20110215
  5. ROCEPHIN [Concomitant]
  6. AMPICILLIN [Concomitant]
  7. CISPLATIN [Suspect]
     Indication: HEAD AND NECK CANCER
     Route: 042
     Dates: start: 20110215, end: 20110215
  8. BACTRIM [Concomitant]
  9. BENADRYL [Concomitant]
     Indication: PREMEDICATION
     Route: 042
     Dates: start: 20110215, end: 20110215
  10. HYDROCORTISONE SODIUM SUCCINATE [Concomitant]
     Indication: PREMEDICATION
     Route: 041
     Dates: start: 20110215, end: 20110215

REACTIONS (2)
  - MENINGITIS ASEPTIC [None]
  - HYPERSENSITIVITY [None]
